FAERS Safety Report 22279659 (Version 10)
Quarter: 2024Q3

REPORT INFORMATION
  Report Type: Report from Study
  Country: US (occurrence: US)
  Receive Date: 20230503
  Receipt Date: 20240827
  Transmission Date: 20241016
  Serious: Yes (Other)
  Sender: JAZZ
  Company Number: US-JAZZ PHARMACEUTICALS-2022-US-029354

PATIENT
  Age: 27 Year
  Sex: Male
  Weight: 57 kg

DRUGS (17)
  1. EPIDIOLEX [Suspect]
     Active Substance: CANNABIDIOL
     Indication: Lennox-Gastaut syndrome
     Dosage: 6.2 MILLILITER, BID
     Route: 048
     Dates: start: 20190315
  2. EPIDIOLEX [Suspect]
     Active Substance: CANNABIDIOL
     Dosage: 22.96 MILLIGRAM/KILOGRAM
     Route: 048
     Dates: start: 201903, end: 20230404
  3. EPIDIOLEX [Suspect]
     Active Substance: CANNABIDIOL
     Dosage: 12.4 MILLIGRAM/KILOGRAM, QD
     Route: 048
     Dates: start: 20220302
  4. ZYRTEC [Concomitant]
     Active Substance: CETIRIZINE HYDROCHLORIDE
     Indication: Seasonal allergy
     Dosage: DAILY
     Route: 048
     Dates: start: 20160503
  5. CLONAZEPAM [Concomitant]
     Active Substance: CLONAZEPAM
     Indication: Behaviour disorder
     Dosage: 0.25 DOSAGE FORM
     Route: 048
     Dates: start: 20210727
  6. MIRALAX [Concomitant]
     Active Substance: POLYETHYLENE GLYCOL 3350
     Indication: Product used for unknown indication
     Dosage: 17 GRAM, QD
     Route: 048
     Dates: start: 20210615
  7. MODERNA COVID-19 VACCINE [Concomitant]
     Active Substance: ELASOMERAN
     Indication: Breakthrough COVID-19
     Dosage: 0.25 MILLILITER ONCE
     Route: 030
     Dates: start: 20211222
  8. POTASSIUM [Concomitant]
     Active Substance: POTASSIUM
     Indication: Hypokalaemia
     Dosage: 20 DOSAGE FORM, QD
     Route: 048
     Dates: start: 20220824
  9. DEPAKOTE ER [Concomitant]
     Active Substance: DIVALPROEX SODIUM
     Indication: Lennox-Gastaut syndrome
     Dosage: 750 MILLIGRAM, QD
     Route: 048
     Dates: start: 20080615, end: 20221023
  10. DEPAKOTE ER [Concomitant]
     Active Substance: DIVALPROEX SODIUM
     Dosage: 500 MILLIGRAM, QD
     Route: 048
     Dates: start: 20221023
  11. FAMOTIDINE [Concomitant]
     Active Substance: FAMOTIDINE
     Indication: Product used for unknown indication
     Dosage: 20 MILLIGRAM, QD
     Route: 048
     Dates: start: 20210715
  12. MONTELUKAST [Concomitant]
     Active Substance: MONTELUKAST SODIUM
     Indication: Product used for unknown indication
     Dosage: 10 MILLIGRAM, QD
     Route: 048
     Dates: start: 20160515
  13. STOOL SOFTENER (DOCUSATE) [Concomitant]
     Active Substance: DOCUSATE
     Indication: Product used for unknown indication
     Dosage: DAILY
     Route: 048
     Dates: start: 20190926
  14. TROKENDI XR [Concomitant]
     Active Substance: TOPIRAMATE
     Indication: Lennox-Gastaut syndrome
     Dosage: 250 MILLIGRAM, QD
     Route: 048
     Dates: start: 20160404
  15. ZYPREXA [Concomitant]
     Active Substance: OLANZAPINE
     Indication: Autism spectrum disorder
     Dosage: 15 MILLIGRAM, QD
     Route: 048
     Dates: start: 20160615, end: 20240306
  16. ZYPREXA [Concomitant]
     Active Substance: OLANZAPINE
     Dosage: 10 MILLIGRAM, QD
     Route: 048
     Dates: start: 20160615
  17. MAGNESIUM OXIDE [Concomitant]
     Active Substance: MAGNESIUM OXIDE
     Indication: Hypomagnesaemia
     Dosage: 400 MILLIGRAM, QD
     Route: 048
     Dates: start: 20220819

REACTIONS (7)
  - Thrombocytopenia [Recovered/Resolved]
  - Hyperbilirubinaemia [Recovered/Resolved]
  - Hepatic steatosis [Unknown]
  - Gastroenteritis [Recovered/Resolved]
  - Metabolic acidosis [Recovered/Resolved]
  - Hypokalaemia [Recovered/Resolved]
  - Hypomagnesaemia [Recovered/Resolved]

NARRATIVE: CASE EVENT DATE: 20220817
